FAERS Safety Report 18594282 (Version 1)
Quarter: 2020Q4

REPORT INFORMATION
  Report Type: Spontaneous
  Country: DE (occurrence: DE)
  Receive Date: 20201209
  Receipt Date: 20201209
  Transmission Date: 20210114
  Serious: Yes (Other)
  Sender: FDA-Public Use
  Company Number: NVSC2020DE324754

PATIENT
  Sex: Female

DRUGS (3)
  1. MIRTAZAPINE. [Concomitant]
     Active Substance: MIRTAZAPINE
     Indication: PRODUCT USED FOR UNKNOWN INDICATION
     Dosage: UNK
     Route: 065
  2. QUETIAPIN 1A PHARMA 25 MG - FILMTABLETTEN [Suspect]
     Active Substance: QUETIAPINE FUMARATE
     Indication: DEPRESSION
     Dosage: 25 MG, QD (1 X DAILY)
     Route: 065
     Dates: start: 2018, end: 2020
  3. AMLODIPINE [Concomitant]
     Active Substance: AMLODIPINE BESYLATE
     Indication: PRODUCT USED FOR UNKNOWN INDICATION
     Dosage: UNK UNK, BID (2 X DAILY)
     Route: 065

REACTIONS (2)
  - Arrhythmia [Unknown]
  - Hyperhidrosis [Unknown]
